FAERS Safety Report 6772180-4 (Version None)
Quarter: 2010Q2

REPORT INFORMATION
  Report Type: 
  Country: None (occurrence: None)
  Receive Date: 20100616
  Receipt Date: 20100607
  Transmission Date: 20101027
  Serious: Yes (Other)
  Sender: FDA-Public Use
  Company Number: PHHY2010US38352

PATIENT

DRUGS (2)
  1. RECLAST [Suspect]
     Indication: OSTEOPOROSIS
     Dosage: 5 MG ONCE A YEAR
     Route: 042
  2. CHEMOTHERAPEUTICS NOS [Concomitant]

REACTIONS (1)
  - BONE FRAGMENTATION [None]
